FAERS Safety Report 13177444 (Version 1)
Quarter: 2017Q1

REPORT INFORMATION
  Report Type: Report from Study
  Country: US (occurrence: US)
  Receive Date: 20170201
  Receipt Date: 20170201
  Transmission Date: 20170428
  Serious: No
  Sender: FDA-Public Use
  Company Number: US-EXELIXIS-CABO-16006272

PATIENT
  Sex: Male

DRUGS (2)
  1. COMETRIQ [Suspect]
     Active Substance: CABOZANTINIB S-MALATE
     Indication: RENAL CANCER
     Dosage: 60 MG, QD
     Route: 048
     Dates: start: 20160319, end: 201606
  2. ADVIL [Concomitant]
     Active Substance: IBUPROFEN

REACTIONS (15)
  - Nail discomfort [Unknown]
  - Parosmia [Unknown]
  - Photophobia [Not Recovered/Not Resolved]
  - Influenza [Unknown]
  - Off label use [Unknown]
  - Nausea [Not Recovered/Not Resolved]
  - Fatigue [Unknown]
  - Diarrhoea [Unknown]
  - Ascites [Unknown]
  - Hair colour changes [Unknown]
  - Motion sickness [Unknown]
  - Sensitivity of teeth [Unknown]
  - Dry skin [Unknown]
  - Retching [Unknown]
  - Arthralgia [Recovered/Resolved]
